FAERS Safety Report 8202761 (Version 3)
Quarter: 2012Q4

REPORT INFORMATION
  Report Type: 
  Country: US (occurrence: US)
  Receive Date: 20111027
  Receipt Date: 20121005
  Transmission Date: 20130627
  Serious: No
  Sender: FDA-Public Use
  Company Number: US-PFIZER INC-2011255547

PATIENT
  Age: 70 Year
  Sex: Male

DRUGS (4)
  1. XALKORI [Suspect]
     Indication: LUNG NEOPLASM MALIGNANT
     Dosage: 250 mg, 2x/day
     Route: 048
     Dates: start: 20111013
  2. TOPROL XL [Concomitant]
     Dosage: 125 mg, daily
  3. ALTACE [Concomitant]
     Dosage: 5 mg, daily
  4. ZANTAC [Concomitant]
     Dosage: 150 mg, 2x/day

REACTIONS (3)
  - Nausea [Unknown]
  - Diarrhoea [Unknown]
  - Vision blurred [Recovered/Resolved]
